FAERS Safety Report 20560978 (Version 2)
Quarter: 2022Q1

REPORT INFORMATION
  Report Type: Report from Study
  Country: DE (occurrence: None)
  Receive Date: 20220307
  Receipt Date: 20220328
  Transmission Date: 20220423
  Serious: Yes (Hospitalization)
  Sender: FDA-Public Use
  Company Number: DE-ROCHE-3036238

PATIENT
  Age: 33 Year
  Sex: Female
  Weight: 78.9 kg

DRUGS (15)
  1. ATEZOLIZUMAB [Suspect]
     Active Substance: ATEZOLIZUMAB
     Indication: Triple negative breast cancer
     Dosage: ON 19/JAN/2022 AND 09/FEB/2022, RECEIVED LAST DOSE OF ATEZOLIZUMAB PRIOR TO SAE
     Route: 041
     Dates: start: 20211013
  2. PACLITAXEL [Suspect]
     Active Substance: PACLITAXEL
     Indication: Triple negative breast cancer
     Dosage: ON 12/JAN/2022, RECEIVED LAST DOSE OF PACLITAXEL PRIOR TO SAE
     Route: 042
     Dates: start: 20211027
  3. CARBOPLATIN [Suspect]
     Active Substance: CARBOPLATIN
     Indication: Triple negative breast cancer
     Dosage: ON 12/JAN/2022, RECEIVED LAST DOSE OF CARBOPLATIN PRIOR TO SAE
     Route: 042
     Dates: start: 20211027
  4. EPIRUBICIN [Suspect]
     Active Substance: EPIRUBICIN
     Indication: Triple negative breast cancer
     Dosage: ON 19/JAN/2022 AND 09/FEB/2022, RECEIVED LAST DOSE OF EPIRUBICIN PRIOR TO SAE
     Route: 042
     Dates: start: 20220119
  5. CYCLOPHOSPHAMIDE [Suspect]
     Active Substance: CYCLOPHOSPHAMIDE
     Indication: Triple negative breast cancer
     Dosage: ON 19/JAN/2022 AND 09/FEB/2022, RECEIVED LAST DOSE OF CYCLOPHOSPHAMIDE PRIOR TO SAE
     Route: 042
     Dates: start: 20220119
  6. DEXAMETHASONE [Concomitant]
     Active Substance: DEXAMETHASONE
     Dates: start: 20211027
  7. DEXAMETHASONE [Concomitant]
     Active Substance: DEXAMETHASONE
     Dates: start: 20211215, end: 20211215
  8. DIMETHINDENE MALEATE [Concomitant]
     Active Substance: DIMETHINDENE MALEATE
     Dates: start: 20211027
  9. ONDANSETRON [Concomitant]
     Active Substance: ONDANSETRON
     Dates: start: 20211215
  10. FERROUS GLUCONATE [Concomitant]
     Active Substance: FERROUS GLUCONATE
     Dates: start: 20220105
  11. DOLOPOSTERINE [Concomitant]
     Dates: start: 20211227
  12. LIDOCAINE [Concomitant]
     Active Substance: LIDOCAINE
     Dates: start: 20211227
  13. MUCOFALK [Concomitant]
     Dates: start: 20211227, end: 20220126
  14. POLYETHYLENE GLYCOLS [Concomitant]
     Active Substance: POLYETHYLENE GLYCOLS
     Dates: start: 20210126
  15. ACYCLOVIR [Concomitant]
     Active Substance: ACYCLOVIR
     Dates: start: 20220218

REACTIONS (2)
  - Pancytopenia [Recovered/Resolved]
  - Febrile neutropenia [Recovered/Resolved]

NARRATIVE: CASE EVENT DATE: 20220126
